FAERS Safety Report 11237142 (Version 1)
Quarter: 2015Q3

REPORT INFORMATION
  Report Type: Spontaneous
  Country: NZ (occurrence: NZ)
  Receive Date: 20150703
  Receipt Date: 20150703
  Transmission Date: 20151125
  Serious: Yes (Other)
  Sender: FDA-Public Use
  Company Number: NZ-009507513-1506NZL015504

PATIENT
  Age: 48 Year
  Sex: Male

DRUGS (2)
  1. BOCEPREVIR [Suspect]
     Active Substance: BOCEPREVIR
     Route: 048
  2. PEGINTERFERON ALFA-2A (+) RIBAVIRIN [Suspect]
     Active Substance: PEGINTERFERON ALFA-2A\RIBAVIRIN

REACTIONS (5)
  - Alopecia [Unknown]
  - Rash [Unknown]
  - Nausea [Unknown]
  - Myocardial infarction [Unknown]
  - Hyperhidrosis [Unknown]
